FAERS Safety Report 6961120-0 (Version None)
Quarter: 2010Q3

REPORT INFORMATION
  Report Type: 
  Country: None (occurrence: None)
  Receive Date: 20100830
  Receipt Date: 20100823
  Transmission Date: 20110219
  Serious: Yes (Death, Hospitalization)
  Sender: FDA-Public Use
  Company Number: SP03088

PATIENT
  Age: 39 Year
  Sex: Male
  Weight: 117.9352 kg

DRUGS (3)
  1. MOVIPREP [Suspect]
     Indication: BOWEL PREPARATION
     Dosage: ORAL
     Route: 048
     Dates: start: 20100812, end: 20100813
  2. MOVIPREP [Suspect]
     Indication: BOWEL PREPARATION
     Dosage: ORAL
     Route: 048
     Dates: start: 20100813, end: 20100814
  3. GOLYTELY [Suspect]
     Indication: BOWEL PREPARATION
     Dosage: ORAL
     Route: 048
     Dates: start: 20100811, end: 20100812

REACTIONS (8)
  - BLOOD CHLORIDE INCREASED [None]
  - BLOOD SODIUM INCREASED [None]
  - CARDIAC ARREST [None]
  - DEHYDRATION [None]
  - DIABETES MELLITUS [None]
  - HYPOKALAEMIA [None]
  - KETOACIDOSIS [None]
  - METABOLIC ACIDOSIS [None]
